FAERS Safety Report 14779727 (Version 2)
Quarter: 2018Q2

REPORT INFORMATION
  Report Type: Report from Study
  Country: US (occurrence: US)
  Receive Date: 20180419
  Receipt Date: 20180517
  Transmission Date: 20180711
  Serious: Yes (Hospitalization)
  Sender: FDA-Public Use
  Company Number: US-GILEAD-2018-0333589

PATIENT
  Age: 30 Year
  Sex: Male

DRUGS (3)
  1. AZTREONAM LYSINE [Suspect]
     Active Substance: AZTREONAM LYSINE
     Indication: BRONCHIECTASIS
     Dosage: 75 MG, TID QOM [EVERY OTHER MONTH]
     Route: 055
     Dates: start: 20120907
  2. AZTREONAM LYSINE [Suspect]
     Active Substance: AZTREONAM LYSINE
     Indication: PSEUDOMONAS INFECTION
     Dosage: 75 MG, TID QOM [EVERY OTHER MONTH]
     Route: 055
  3. AZTREONAM LYSINE [Suspect]
     Active Substance: AZTREONAM LYSINE
     Indication: HYPOXIA

REACTIONS (4)
  - Drug dose omission [Recovered/Resolved]
  - Viral infection [Recovering/Resolving]
  - Off label use [Not Recovered/Not Resolved]
  - Infective exacerbation of bronchiectasis [Unknown]

NARRATIVE: CASE EVENT DATE: 20120910
